FAERS Safety Report 15861633 (Version 1)
Quarter: 2019Q1

REPORT INFORMATION
  Report Type: Spontaneous
  Country: MY (occurrence: MY)
  Receive Date: 20190124
  Receipt Date: 20190124
  Transmission Date: 20190417
  Serious: Yes (Other)
  Sender: FDA-Public Use
  Company Number: MY-ACCORD-103217

PATIENT
  Age: 43 Year
  Sex: Male

DRUGS (3)
  1. METHADONE/METHADONE HYDROCHLORIDE [Interacting]
     Active Substance: METHADONE HYDROCHLORIDE
     Indication: DRUG DEPENDENCE
  2. AMITRIPTYLINE [Suspect]
     Active Substance: AMITRIPTYLINE
     Indication: DEPRESSION
     Dosage: 50 MG, INCREASED GRADUALLY
  3. AMITRIPTYLINE [Interacting]
     Active Substance: AMITRIPTYLINE
     Indication: DEPRESSION

REACTIONS (5)
  - Restlessness [Recovered/Resolved]
  - Drug interaction [Unknown]
  - Aggression [Recovered/Resolved]
  - Delirium [Recovered/Resolved]
  - Depressed mood [Recovered/Resolved]
